FAERS Safety Report 4429870-8 (Version None)
Quarter: 2004Q3

REPORT INFORMATION
  Report Type: 
  Country: None (occurrence: None)
  Receive Date: 20040816
  Receipt Date: 20040802
  Transmission Date: 20050211
  Serious: Yes (Other)
  Sender: FDA-Public Use
  Company Number: 2004052549

PATIENT
  Sex: Female

DRUGS (3)
  1. PHENYTOIN [Suspect]
     Indication: ILL-DEFINED DISORDER
     Dosage: ORAL
  2. ASPIRIN [Concomitant]
  3. LOSARTAN (LOSARTAN) [Concomitant]

REACTIONS (1)
  - HYPONATRAEMIA [None]
